FAERS Safety Report 7682117-1 (Version None)
Quarter: 2011Q3

REPORT INFORMATION
  Report Type: 
  Country: None (occurrence: None)
  Receive Date: 20110815
  Receipt Date: 20110808
  Transmission Date: 20111222
  Serious: Yes (Hospitalization)
  Sender: FDA-Public Use
  Company Number: US-TEVA-295473USA

PATIENT
  Age: 85 Year
  Sex: Male

DRUGS (2)
  1. ROPINIROLE [Suspect]
     Indication: RESTLESS LEGS SYNDROME
  2. MIRTAZAPINE [Suspect]
     Indication: DEPRESSION
     Dosage: BEDTIME

REACTIONS (2)
  - PSYCHOTIC DISORDER [None]
  - RESTLESS LEGS SYNDROME [None]
